FAERS Safety Report 16212645 (Version 1)
Quarter: 2019Q2

REPORT INFORMATION
  Report Type: Spontaneous
  Country: CH (occurrence: CH)
  Receive Date: 20190418
  Receipt Date: 20190418
  Transmission Date: 20190711
  Serious: Yes (Other)
  Sender: FDA-Public Use
  Company Number: CH-VELOXIS PHARMACEUTICALS, INC.-2019VELCH1494

PATIENT
  Age: 37 Year
  Sex: Female

DRUGS (1)
  1. ENVARSUS XR [Suspect]
     Active Substance: TACROLIMUS
     Indication: LUPUS NEPHRITIS
     Dosage: UNK
     Route: 048

REACTIONS (10)
  - Premature labour [Recovered/Resolved]
  - Weight increased [Unknown]
  - Thrombocytopenia [Unknown]
  - Maternal exposure during pregnancy [Unknown]
  - Proteinuria [Unknown]
  - Hypertension [Not Recovered/Not Resolved]
  - Acute kidney injury [Unknown]
  - Oedema [Unknown]
  - Anuria [Unknown]
  - Intentional product use issue [Unknown]
